FAERS Safety Report 7918216 (Version 21)
Quarter: 2013Q2

REPORT INFORMATION
  Report Type: Spontaneous
  Country: US (occurrence: US)
  Receive Date: 20110428
  Receipt Date: 20130415
  Transmission Date: 20140414
  Serious: Yes (Death, Other)
  Sender: FDA-Public Use
  Company Number: PHEH2011US00466

PATIENT
  Age: 63 Year
  Sex: Female

DRUGS (14)
  1. ZOMETA [Suspect]
     Indication: NEOPLASM MALIGNANT
     Route: 042
     Dates: start: 2004, end: 2010
  2. 5-FLUOROURACIL [Concomitant]
  3. CAPECITABINE [Concomitant]
  4. CYCLOPHOSPHAMIDE [Concomitant]
  5. ANASTROZOLE [Concomitant]
  6. FULVESTRANT [Concomitant]
  7. MEGESTROL [Concomitant]
  8. TAMOXIFEN [Concomitant]
  9. OXYCONTIN [Concomitant]
  10. RANITIDINE [Concomitant]
  11. MULTIPLE VITAMINS [Concomitant]
  12. CEFALEXIN [Concomitant]
  13. LOPID [Concomitant]
  14. ABRAXANE [Concomitant]

REACTIONS (109)
  - Death [Fatal]
  - Osteonecrosis of jaw [Unknown]
  - Pain [Unknown]
  - Infection [Unknown]
  - Deformity [Unknown]
  - Injury [Unknown]
  - Emotional distress [Unknown]
  - Physical disability [Unknown]
  - Anxiety [Unknown]
  - Dental caries [Unknown]
  - Bone fragmentation [Unknown]
  - Discomfort [Unknown]
  - Osteomyelitis [Unknown]
  - Bone loss [Unknown]
  - Tooth fracture [Unknown]
  - Swelling face [Unknown]
  - Exposed bone in jaw [Unknown]
  - Erythema [Unknown]
  - Swelling [Unknown]
  - Cellulitis [Unknown]
  - Sinusitis [Unknown]
  - Spinal pain [Unknown]
  - Anaemia [Unknown]
  - Rib fracture [Unknown]
  - Spinal osteoarthritis [Unknown]
  - Diverticulum intestinal [Unknown]
  - Metastases to bone [Unknown]
  - Hypercholesterolaemia [Unknown]
  - Coronary artery disease [Unknown]
  - Metastases to breast [Unknown]
  - Kyphoscoliosis [Unknown]
  - Thyroid neoplasm [Unknown]
  - Carotid arteriosclerosis [Unknown]
  - Palpitations [Unknown]
  - Bronchitis [Unknown]
  - Bone lesion [Unknown]
  - Bone erosion [Unknown]
  - Chronic obstructive pulmonary disease [Unknown]
  - Respiratory distress [Unknown]
  - Hypoxia [Unknown]
  - Interstitial lung disease [Unknown]
  - Convulsion [Unknown]
  - Metastases to central nervous system [Unknown]
  - Metastases to pelvis [Unknown]
  - Pancytopenia [Unknown]
  - Osteosclerosis [Unknown]
  - Goitre [Unknown]
  - Asthma [Unknown]
  - Scoliosis [Unknown]
  - Carotid artery occlusion [Unknown]
  - Carotid artery stenosis [Unknown]
  - Lymphadenopathy [Unknown]
  - Osteolysis [Unknown]
  - Gastrooesophageal reflux disease [Unknown]
  - Stress urinary incontinence [Unknown]
  - Gait disturbance [Unknown]
  - Fall [Unknown]
  - Depression [Unknown]
  - Neuropathy peripheral [Unknown]
  - Urinary incontinence [Unknown]
  - Faecal incontinence [Unknown]
  - Arteriosclerosis coronary artery [Unknown]
  - Aortic arteriosclerosis [Unknown]
  - Vascular calcification [Unknown]
  - Spinal column stenosis [Unknown]
  - Exostosis [Unknown]
  - Osteopenia [Unknown]
  - Haematochezia [Unknown]
  - Grip strength decreased [Unknown]
  - Vertigo [Unknown]
  - Visual impairment [Unknown]
  - Breath sounds abnormal [Unknown]
  - Coordination abnormal [Unknown]
  - Sputum discoloured [Unknown]
  - Cough [Unknown]
  - Osteitis [Unknown]
  - Spinal disorder [Unknown]
  - Breast mass [Unknown]
  - Malnutrition [Unknown]
  - Toothache [Unknown]
  - Venous stenosis [Unknown]
  - Pain in jaw [Unknown]
  - Amnesia [Unknown]
  - Pelvic pain [Unknown]
  - Oedema peripheral [Unknown]
  - Musculoskeletal chest pain [Unknown]
  - Constipation [Unknown]
  - Nocturia [Unknown]
  - Dysphagia [Unknown]
  - Dyspnoea [Unknown]
  - Tachycardia [Unknown]
  - Paraesthesia [Unknown]
  - Hypokalaemia [Unknown]
  - Mucosal hyperaemia [Unknown]
  - Chest pain [Unknown]
  - Rhinitis allergic [Unknown]
  - Back pain [Unknown]
  - Decreased appetite [Unknown]
  - Nausea [Unknown]
  - Dizziness [Unknown]
  - Asthenia [Unknown]
  - Wheezing [Unknown]
  - Rales [Unknown]
  - Weight decreased [Unknown]
  - Skin swelling [Unknown]
  - Muscle atrophy [Unknown]
  - Face oedema [Unknown]
  - Hypoaesthesia [Unknown]
  - Pain in extremity [Unknown]
